FAERS Safety Report 7227871-8 (Version None)
Quarter: 2011Q1

REPORT INFORMATION
  Report Type: 
  Country: None (occurrence: None)
  Receive Date: 20110114
  Receipt Date: 20110107
  Transmission Date: 20110831
  Serious: Yes (Death)
  Sender: FDA-Public Use
  Company Number: US-MERCK-1101USA00884

PATIENT
  Age: 62 Year
  Sex: Female

DRUGS (6)
  1. FUROSEMIDE [Suspect]
     Route: 065
  2. CARBAMAZEPINE [Suspect]
     Route: 065
  3. ZOCOR [Suspect]
     Route: 048
  4. SYNTHROID [Suspect]
     Route: 065
  5. ELAVIL [Suspect]
     Route: 048
  6. PERPHENAZINE [Suspect]
     Route: 065

REACTIONS (2)
  - OVERDOSE [None]
  - COMPLETED SUICIDE [None]
